FAERS Safety Report 18840711 (Version 1)
Quarter: 2021Q1

REPORT INFORMATION
  Report Type: Spontaneous
  Country: NZ (occurrence: NZ)
  Receive Date: 20210203
  Receipt Date: 20210203
  Transmission Date: 20210419
  Serious: Yes (Death)
  Sender: FDA-Public Use
  Company Number: NZ-MYLANLABS-2019M1112860

PATIENT
  Age: 24 Year
  Sex: Male

DRUGS (1)
  1. LOGEM [Suspect]
     Active Substance: LAMOTRIGINE
     Indication: EPILEPSY
     Dosage: UNK

REACTIONS (2)
  - Product substitution issue [Unknown]
  - Death [Fatal]
